FAERS Safety Report 6446557-0 (Version None)
Quarter: 2009Q4

REPORT INFORMATION
  Report Type: 
  Country: None (occurrence: None)
  Receive Date: 20091116
  Receipt Date: 20091111
  Transmission Date: 20100525
  Serious: Yes (Death, Hospitalization, Other)
  Sender: FDA-Public Use
  Company Number: 2009017753

PATIENT
  Age: 69 Year
  Sex: Female
  Weight: 78 kg

DRUGS (5)
  1. TRISENOX [Suspect]
     Indication: MYELOID LEUKAEMIA
     Dosage: (0.3 MG/M2, DAY 1-5; WEEKLY), INTRAVENOUS
     Route: 042
     Dates: start: 20090929, end: 20091003
  2. TRISENOX [Suspect]
     Indication: MYELOID LEUKAEMIA
     Dosage: (0.3 MG/M2, DAY 1-5; WEEKLY), INTRAVENOUS
     Route: 042
     Dates: start: 20091005
  3. DECITABINE (DECITABINE) [Suspect]
     Indication: MYELOID LEUKAEMIA
     Dosage: (20 MG/M2, DAY 1-5; WEEKLY), INTRAVENOUS
     Route: 042
     Dates: start: 20090929, end: 20091003
  4. DECITABINE (DECITABINE) [Suspect]
     Indication: MYELOID LEUKAEMIA
     Dosage: (20 MG/M2, DAY 1-5; WEEKLY), INTRAVENOUS
     Route: 042
     Dates: start: 20091005
  5. ASCORBIC ACID [Suspect]
     Indication: MYELOID LEUKAEMIA
     Dosage: (1000 MG, DAY 1-5;
     Dates: start: 20090929, end: 20091003

REACTIONS (6)
  - COUGH [None]
  - DYSPNOEA [None]
  - ELECTROCARDIOGRAM QT PROLONGED [None]
  - HYPOTENSION [None]
  - PNEUMONIA [None]
  - RESPIRATORY ALKALOSIS [None]
